FAERS Safety Report 8667007 (Version 2)
Quarter: 2012Q4

REPORT INFORMATION
  Report Type: 
  Country: BR (occurrence: BR)
  Receive Date: 20120716
  Receipt Date: 20121213
  Transmission Date: 20130627
  Serious: Yes (Hospitalization, Other)
  Sender: FDA-Public Use
  Company Number: BR-BAYER-2012-069287

PATIENT
  Sex: Female

DRUGS (3)
  1. BETAFERON [Suspect]
     Indication: MULTIPLE SCLEROSIS
     Dosage: 1 ml, QOD
     Route: 058
  2. RIVOTRIL [Concomitant]
     Indication: RELAXATION THERAPY
     Dosage: 1 DF, HS
     Route: 048
     Dates: start: 1997
  3. PAMELOR [Concomitant]
     Indication: DEPRESSION
     Dosage: 1 DF, QD
     Route: 048

REACTIONS (11)
  - Multiple sclerosis relapse [Recovered/Resolved]
  - Malaise [Recovered/Resolved]
  - Fall [Recovered/Resolved]
  - Neurogenic bladder [Recovered/Resolved]
  - Haemoglobin decreased [Recovered/Resolved]
  - Multiple sclerosis relapse [Not Recovered/Not Resolved]
  - Spinal cord disorder [Not Recovered/Not Resolved]
  - Multiple sclerosis relapse [Not Recovered/Not Resolved]
  - Abdominal distension [Not Recovered/Not Resolved]
  - Back pain [Not Recovered/Not Resolved]
  - Spinal disorder [Not Recovered/Not Resolved]
